FAERS Safety Report 14674495 (Version 1)
Quarter: 2018Q1

REPORT INFORMATION
  Report Type: Spontaneous
  Country: RU (occurrence: RU)
  Receive Date: 20180323
  Receipt Date: 20180323
  Transmission Date: 20180509
  Serious: Yes (Hospitalization, Other)
  Sender: FDA-Public Use
  Company Number: RU-ASTRAZENECA-2018SE33949

PATIENT
  Age: 67 Year
  Sex: Male
  Weight: 65 kg

DRUGS (4)
  1. BETALOC ZOK [Concomitant]
     Active Substance: METOPROLOL SUCCINATE
  2. ROSUVASTATIN. [Concomitant]
     Active Substance: ROSUVASTATIN
  3. THROMBO ASS [Concomitant]
     Active Substance: ASPIRIN
  4. BRILINTA [Suspect]
     Active Substance: TICAGRELOR
     Indication: MYOCARDIAL INFARCTION
     Route: 048
     Dates: start: 201706

REACTIONS (4)
  - Weight decreased [Unknown]
  - Blood pressure increased [Unknown]
  - Chest pain [Unknown]
  - Epistaxis [Not Recovered/Not Resolved]

NARRATIVE: CASE EVENT DATE: 201706
